FAERS Safety Report 6770838-4 (Version None)
Quarter: 2010Q2

REPORT INFORMATION
  Report Type: 
  Country: None (occurrence: None)
  Receive Date: 20100614
  Receipt Date: 20100614
  Transmission Date: 20101027
  Serious: Yes (Other)
  Sender: FDA-Public Use
  Company Number: None

PATIENT
  Age: 5 Year
  Sex: Male
  Weight: 20.4119 kg

DRUGS (1)
  1. AMPHETAMINE SULFATE [Suspect]
     Indication: ATTENTION DEFICIT/HYPERACTIVITY DISORDER
     Dosage: ONE CAPSULE 1 PER DAY PO
     Route: 048
     Dates: start: 20100611, end: 20100613

REACTIONS (14)
  - ABNORMAL BEHAVIOUR [None]
  - AFFECTIVE DISORDER [None]
  - AGITATION [None]
  - CONFUSIONAL STATE [None]
  - CRYING [None]
  - DEPRESSION [None]
  - DISTURBANCE IN ATTENTION [None]
  - DRUG INEFFECTIVE [None]
  - FEELING ABNORMAL [None]
  - HEADACHE [None]
  - PRODUCT FORMULATION ISSUE [None]
  - PRODUCT LABEL ISSUE [None]
  - PRODUCT SUBSTITUTION ISSUE [None]
  - SOMNOLENCE [None]
